FAERS Safety Report 12161626 (Version 1)
Quarter: 2016Q1

REPORT INFORMATION
  Report Type: Spontaneous
  Country: US (occurrence: US)
  Receive Date: 20160309
  Receipt Date: 20160309
  Transmission Date: 20160526
  Serious: No
  Sender: FDA-Public Use
  Company Number: US-ALEXION-A201601582

PATIENT
  Sex: Female

DRUGS (1)
  1. SOLIRIS [Suspect]
     Active Substance: ECULIZUMAB
     Indication: PAROXYSMAL NOCTURNAL HAEMOGLOBINURIA
     Route: 042

REACTIONS (7)
  - Influenza [Not Recovered/Not Resolved]
  - Pain [Unknown]
  - Ear pain [Unknown]
  - Chills [Not Recovered/Not Resolved]
  - Cough [Not Recovered/Not Resolved]
  - Chest discomfort [Unknown]
  - Oropharyngeal pain [Unknown]

NARRATIVE: CASE EVENT DATE: 20160225
